FAERS Safety Report 5255431-7 (Version None)
Quarter: 2007Q1

REPORT INFORMATION
  Report Type: 
  Country: None (occurrence: None)
  Receive Date: 20070305
  Receipt Date: 20070220
  Transmission Date: 20070707
  Serious: Yes (Hospitalization)
  Sender: FDA-Public Use
  Company Number: PHRM2007FR00478

PATIENT
  Age: 65 Year
  Sex: Male

DRUGS (6)
  1. CYTARABINE [Concomitant]
     Dates: start: 20060929, end: 20061006
  2. ANZEMET [Concomitant]
     Route: 048
     Dates: start: 20060929, end: 20061006
  3. FASTURTEC [Concomitant]
     Route: 048
     Dates: start: 20060929, end: 20061104
  4. CARMUSTINE [Concomitant]
     Dates: start: 20060929, end: 20061006
  5. IDARUBICIN HCL [Concomitant]
     Dates: start: 20060929, end: 20061006
  6. GLEEVEC [Suspect]
     Indication: CHRONIC MYELOID LEUKAEMIA
     Dosage: 800 MG PER DAY
     Route: 048
     Dates: start: 20060929, end: 20061022

REACTIONS (2)
  - CELLULITIS STAPHYLOCOCCAL [None]
  - MUCOSAL INFLAMMATION [None]
